FAERS Safety Report 8045813-2 (Version None)
Quarter: 2012Q1

REPORT INFORMATION
  Report Type: 
  Country: None (occurrence: None)
  Receive Date: 20120113
  Receipt Date: 20120111
  Transmission Date: 20120608
  Serious: Yes (Death)
  Sender: FDA-Public Use
  Company Number: US-PFIZER INC-2010001288

PATIENT
  Age: 47 Year
  Sex: Female

DRUGS (7)
  1. BACLOFEN [Suspect]
     Route: 048
  2. BUTALBITAL AND ACETAMINOPHEN [Suspect]
     Route: 048
  3. PREGABALIN [Suspect]
     Route: 048
  4. ALPRAZOLAM [Suspect]
     Route: 048
  5. HYDROXYZINE PAMOATE [Suspect]
     Route: 048
  6. MIRTAZAPINE [Suspect]
     Route: 048
  7. LEVOTHYROXINE SODIUM [Suspect]
     Route: 048

REACTIONS (2)
  - COMPLETED SUICIDE [None]
  - INTENTIONAL DRUG MISUSE [None]
